FAERS Safety Report 4600537-6 (Version None)
Quarter: 2005Q1

REPORT INFORMATION
  Report Type: 
  Country: None (occurrence: None)
  Receive Date: 20050304
  Receipt Date: 20050228
  Transmission Date: 20050727
  Serious: Yes (Other)
  Sender: FDA-Public Use
  Company Number: 050015

PATIENT
  Age: 44 Year
  Sex: Female

DRUGS (2)
  1. HALFLYTELY [Suspect]
     Indication: COLONOSCOPY
     Dosage: 20MG/2L, 1X, PO
     Route: 048
     Dates: start: 20050224
  2. SYNTHROID [Concomitant]

REACTIONS (4)
  - ASTHMA [None]
  - FEELING ABNORMAL [None]
  - RASH [None]
  - VOMITING [None]
